FAERS Safety Report 6401214-1 (Version None)
Quarter: 2009Q4

REPORT INFORMATION
  Report Type: 
  Country: None (occurrence: None)
  Receive Date: 20091015
  Receipt Date: 20091006
  Transmission Date: 20100525
  Serious: Yes (Other)
  Sender: FDA-Public Use
  Company Number: US-PFIZER INC-2009278549

PATIENT
  Sex: Male

DRUGS (14)
  1. BLINDED *NO SUBJECT DRUG [Suspect]
     Indication: HIV INFECTION
     Dosage: UNK
     Route: 048
     Dates: start: 20050802, end: 20060617
  2. BLINDED *PLACEBO [Suspect]
     Indication: HIV INFECTION
     Dosage: UNK
     Route: 048
     Dates: start: 20050802, end: 20060617
  3. BLINDED MARAVIROC [Suspect]
     Indication: HIV INFECTION
     Dosage: UNK
     Route: 048
     Dates: start: 20050802, end: 20060617
  4. COREG [Concomitant]
     Dosage: UNK
     Route: 048
  5. ASPIRIN [Concomitant]
     Dosage: UNK
     Route: 048
  6. LISINOPRIL [Concomitant]
     Dosage: UNK
     Route: 048
  7. NORVIR [Concomitant]
     Dosage: UNK
     Route: 048
  8. PLAVIX [Concomitant]
     Dosage: UNK
     Route: 048
  9. PRAVACHOL [Concomitant]
     Dosage: UNK
     Route: 048
  10. PREZISTA [Concomitant]
     Dosage: UNK
     Route: 048
  11. TRUVADA [Concomitant]
     Dosage: UNK
     Route: 048
  12. NITROGLYCERIN [Concomitant]
     Dosage: UNK
     Route: 048
  13. PROVENTIL /OLD FORM/ [Concomitant]
     Dosage: UNK
     Route: 048
  14. PERCOCET [Concomitant]
     Dosage: UNK
     Route: 048

REACTIONS (2)
  - ACUTE CORONARY SYNDROME [None]
  - ANGINA UNSTABLE [None]
